FAERS Safety Report 19755387 (Version 2)
Quarter: 2022Q1

REPORT INFORMATION
  Report Type: Spontaneous
  Country: US (occurrence: US)
  Receive Date: 20210827
  Receipt Date: 20220331
  Transmission Date: 20220423
  Serious: Yes (Death, Other)
  Sender: FDA-Public Use
  Company Number: US-GLAXOSMITHKLINE-US2021GSK179223

PATIENT
  Sex: Male

DRUGS (8)
  1. ZANTAC [Suspect]
     Active Substance: RANITIDINE HYDROCHLORIDE
     Indication: Dyspepsia
     Dosage: 150 MG, QD, INTERCHANGEABLY WITH RANITIDINE
     Route: 065
     Dates: start: 198301, end: 201201
  2. ZANTAC [Suspect]
     Active Substance: RANITIDINE HYDROCHLORIDE
     Indication: Dyspepsia
     Dosage: 150 MG, QD, INTERCHANGEABLY WITH RANITIDINE
     Route: 065
     Dates: start: 198301, end: 201201
  3. RANITIDINE [Suspect]
     Active Substance: RANITIDINE
     Indication: Dyspepsia
     Dosage: 75 MG, QD
     Route: 065
     Dates: start: 199701, end: 201201
  4. RANITIDINE [Suspect]
     Active Substance: RANITIDINE
     Dosage: 150 MG, QD
     Route: 065
     Dates: start: 199701, end: 201201
  5. RANITIDINE [Suspect]
     Active Substance: RANITIDINE
     Indication: Dyspepsia
     Dosage: 75 MG, QD, INTERCHANGEABLY WITH ZANTAC
     Route: 065
     Dates: start: 199701, end: 201201
  6. RANITIDINE [Suspect]
     Active Substance: RANITIDINE
     Dosage: 150 MG, QD, INTERCHANGEABLY WITH ZANTAC
     Route: 065
     Dates: start: 199701, end: 201201
  7. ZANTAC [Suspect]
     Active Substance: RANITIDINE HYDROCHLORIDE
     Indication: Dyspepsia
     Dosage: 150 MG, QD, INTERCHANGEABLY WITH RANITIDINE
     Route: 065
     Dates: start: 198301, end: 201201
  8. RANITIDINE [Suspect]
     Active Substance: RANITIDINE
     Indication: Dyspepsia
     Dosage: 150 MG, QD, INTERCHANGEABLY WITH RANITIDINE
     Route: 065
     Dates: start: 198301, end: 201201

REACTIONS (1)
  - Prostate cancer [Fatal]
